FAERS Safety Report 23132308 (Version 1)
Quarter: 2023Q4

REPORT INFORMATION
  Report Type: Spontaneous
  Country: US (occurrence: US)
  Receive Date: 20231101
  Receipt Date: 20231101
  Transmission Date: 20240109
  Serious: No
  Sender: FDA-Public Use
  Company Number: US-ALK-ABELLO A/S-2023AA003667

PATIENT

DRUGS (1)
  1. ODACTRA [Suspect]
     Active Substance: DERMATOPHAGOIDES FARINAE\DERMATOPHAGOIDES PTERONYSSINUS
     Indication: Product used for unknown indication

REACTIONS (5)
  - Pharyngeal swelling [Unknown]
  - Lip swelling [Unknown]
  - Swollen tongue [Unknown]
  - Chest discomfort [Unknown]
  - Dyspnoea [Unknown]
